FAERS Safety Report 16294775 (Version 1)
Quarter: 2019Q2

REPORT INFORMATION
  Report Type: Spontaneous
  Country: US (occurrence: US)
  Receive Date: 20190404
  Receipt Date: 20190404
  Transmission Date: 20190711
  Serious: No
  Sender: FDA-Public Use
  Company Number: None

PATIENT
  Age: 34 Year
  Sex: Female

DRUGS (1)
  1. OPSUMIT [Suspect]
     Active Substance: MACITENTAN
     Indication: PULMONARY ARTERIAL HYPERTENSION
     Route: 048
     Dates: start: 20190315

REACTIONS (4)
  - Catheter site erythema [None]
  - Catheter site swelling [None]
  - Catheter site pruritus [None]
  - Catheter site cellulitis [None]

NARRATIVE: CASE EVENT DATE: 20190322
